FAERS Safety Report 4703468-6 (Version None)
Quarter: 2005Q2

REPORT INFORMATION
  Report Type: 
  Country: None (occurrence: None)
  Receive Date: 20050629
  Receipt Date: 20050609
  Transmission Date: 20051028
  Serious: Yes (Death)
  Sender: FDA-Public Use
  Company Number: USA050598161

PATIENT
  Age: 83 Year
  Sex: Male

DRUGS (6)
  1. CYMBALTA [Suspect]
     Indication: DEPRESSION
     Dosage: 60 MG DAY
     Route: 048
     Dates: start: 20050416
  2. ZOLOFT (SERTRALINE HYDROHCLORIDE) [Concomitant]
  3. TRIAMTERENE AND HYDROCHLOROTHIAZIDE [Concomitant]
  4. COLCHICINE [Concomitant]
  5. CENTRUM [Concomitant]
  6. PAXIL [Concomitant]

REACTIONS (9)
  - ABASIA [None]
  - ABDOMINAL PAIN UPPER [None]
  - ANOREXIA [None]
  - CARDIAC FAILURE CONGESTIVE [None]
  - HEART RATE INCREASED [None]
  - INSOMNIA [None]
  - ISCHAEMIC CARDIOMYOPATHY [None]
  - PAIN IN EXTREMITY [None]
  - WEIGHT DECREASED [None]
